FAERS Safety Report 10367592 (Version 1)
Quarter: 2014Q3

REPORT INFORMATION
  Report Type: Spontaneous
  Country: FR (occurrence: FR)
  Receive Date: 20140807
  Receipt Date: 20140807
  Transmission Date: 20150326
  Serious: Yes (Hospitalization)
  Sender: FDA-Public Use
  Company Number: FR-TEVA-498803ISR

PATIENT
  Age: 9 Day
  Sex: Male
  Weight: 3.75 kg

DRUGS (2)
  1. LEVOCARNIL [Concomitant]
     Active Substance: LEVOCARNITINE
     Dosage: 10 MG/KG DAILY;
     Dates: start: 20140610, end: 20140616
  2. PROGLYCEM [Suspect]
     Active Substance: DIAZOXIDE
     Indication: HYPERINSULINISM
     Dosage: 10 MG/KG DAILY; DIVIDED INTO THREE DOSES
     Route: 048
     Dates: start: 20140612, end: 20140619

REACTIONS (2)
  - Pulmonary arterial hypertension [Recovering/Resolving]
  - Condition aggravated [Recovering/Resolving]

NARRATIVE: CASE EVENT DATE: 20140619
